FAERS Safety Report 16555909 (Version 2)
Quarter: 2019Q3

REPORT INFORMATION
  Report Type: Spontaneous
  Country: NL (occurrence: NL)
  Receive Date: 20190710
  Receipt Date: 20190715
  Transmission Date: 20191004
  Serious: Yes (Other)
  Sender: FDA-Public Use
  Company Number: NL-MYLANLABS-2019M1063491

PATIENT
  Age: 71 Year
  Sex: Male

DRUGS (2)
  1. OXALIPLATIN. [Suspect]
     Active Substance: OXALIPLATIN
     Indication: COLON CANCER
     Dosage: UNK (8 COURSES)
     Route: 065
     Dates: start: 2011
  2. CAPECITABINE. [Suspect]
     Active Substance: CAPECITABINE
     Indication: COLON CANCER
     Dosage: UNK (8 COURSES)
     Route: 065
     Dates: start: 2011

REACTIONS (2)
  - Lung carcinoma cell type unspecified stage IV [Recovering/Resolving]
  - Second primary malignancy [Unknown]
